FAERS Safety Report 11700389 (Version 1)
Quarter: 2015Q4

REPORT INFORMATION
  Report Type: Spontaneous
  Country: US (occurrence: None)
  Receive Date: 20151104
  Receipt Date: 20151104
  Transmission Date: 20160304
  Serious: No
  Sender: FDA-Public Use
  Company Number: None

PATIENT
  Age: 49 Year
  Sex: Female
  Weight: 58.51 kg

DRUGS (8)
  1. ROBITUSSIN DM [Concomitant]
     Active Substance: DEXTROMETHORPHAN HYDROBROMIDE\GUAIFENESIN
  2. LEVOTHYROXINE. [Concomitant]
     Active Substance: LEVOTHYROXINE
  3. CALCIUM [Concomitant]
     Active Substance: CALCIUM
  4. COPAXONE [Concomitant]
     Active Substance: GLATIRAMER ACETATE
  5. MULTIVITAMIN [Concomitant]
     Active Substance: VITAMINS
  6. DIVALPROEX [Concomitant]
     Active Substance: DIVALPROEX SODIUM
  7. BENZONATATE. [Suspect]
     Active Substance: BENZONATATE
     Indication: COUGH
     Route: 048
     Dates: start: 20151102, end: 20151102
  8. MACRODANTIN [Concomitant]
     Active Substance: NITROFURANTOIN

REACTIONS (7)
  - Vomiting [None]
  - Hypoaesthesia [None]
  - Nausea [None]
  - Retching [None]
  - Feeling hot [None]
  - Hypoaesthesia oral [None]
  - Headache [None]

NARRATIVE: CASE EVENT DATE: 20151103
